FAERS Safety Report 25699344 (Version 2)
Quarter: 2025Q4

REPORT INFORMATION
  Report Type: Spontaneous
  Country: US (occurrence: US)
  Receive Date: 20250819
  Receipt Date: 20251015
  Transmission Date: 20260118
  Serious: No
  Sender: Kenvue
  Company Number: US-KENVUE-20250709202

PATIENT
  Age: 60 Year
  Sex: Female

DRUGS (1)
  1. PEPCID COMPLETE [Suspect]
     Active Substance: CALCIUM CARBONATE\FAMOTIDINE\MAGNESIUM HYDROXIDE
     Indication: Gastrooesophageal reflux disease
     Dosage: 1 DOSAGE FORM, ONCE A DAY DAILY (1 CHEWABLE TABLET ONCE DAILY)
     Route: 065
     Dates: start: 20250720, end: 202507

REACTIONS (5)
  - Vomiting [Recovering/Resolving]
  - Product taste abnormal [Unknown]
  - Product physical issue [Unknown]
  - Product packaging issue [Unknown]
  - Poor quality product administered [Unknown]

NARRATIVE: CASE EVENT DATE: 20250720
